FAERS Safety Report 19314273 (Version 2)
Quarter: 2021Q2

REPORT INFORMATION
  Report Type: Spontaneous
  Country: US (occurrence: US)
  Receive Date: 20210527
  Receipt Date: 20210603
  Transmission Date: 20210717
  Serious: No
  Sender: FDA-Public Use
  Company Number: US-GLAXOSMITHKLINE-US2021109194

PATIENT
  Age: 57 Year
  Sex: Female

DRUGS (1)
  1. FLONASE [Suspect]
     Active Substance: FLUTICASONE PROPIONATE
     Indication: HYPERSENSITIVITY
     Dosage: UNK

REACTIONS (6)
  - Steroid therapy [Unknown]
  - Prescription drug used without a prescription [Unknown]
  - Ocular hyperaemia [Unknown]
  - Periorbital swelling [Unknown]
  - Product use issue [Unknown]
  - Arthropathy [Unknown]
